FAERS Safety Report 5956970-3 (Version None)
Quarter: 2008Q4

REPORT INFORMATION
  Report Type: 
  Country: None (occurrence: None)
  Receive Date: 20081118
  Receipt Date: 20081110
  Transmission Date: 20090506
  Serious: Yes (Other)
  Sender: FDA-Public Use
  Company Number: BR-PFIZER INC-2008037954

PATIENT
  Age: 56 Year
  Sex: Male

DRUGS (7)
  1. ALDACTONE [Suspect]
     Route: 048
  2. CARVEDILOL [Concomitant]
  3. LASIX [Concomitant]
  4. DIGOXIN [Concomitant]
  5. ANCORON [Concomitant]
  6. CAPTOPRIL [Concomitant]
  7. VIAGRA [Concomitant]

REACTIONS (3)
  - DYSPNOEA [None]
  - EJECTION FRACTION ABNORMAL [None]
  - PULMONARY HYPERTENSION [None]
